FAERS Safety Report 20023417 (Version 1)
Quarter: 2021Q4

REPORT INFORMATION
  Report Type: Spontaneous
  Country: AT (occurrence: AT)
  Receive Date: 20211102
  Receipt Date: 20211102
  Transmission Date: 20220303
  Serious: Yes (Death, Other)
  Sender: FDA-Public Use
  Company Number: AT-ELI_LILLY_AND_COMPANY-AT202110011774

PATIENT
  Age: 74 Year
  Sex: Female

DRUGS (2)
  1. ABEMACICLIB [Suspect]
     Active Substance: ABEMACICLIB
     Indication: Breast cancer
     Dosage: 100 MG, UNKNOWN
     Route: 065
  2. FEMARA [Concomitant]
     Active Substance: LETROZOLE
     Indication: Breast cancer

REACTIONS (2)
  - Pneumonia [Fatal]
  - Metastases to bone [Unknown]
